FAERS Safety Report 17477055 (Version 1)
Quarter: 2020Q1

REPORT INFORMATION
  Report Type: Spontaneous
  Country: US (occurrence: US)
  Receive Date: 20200229
  Receipt Date: 20200229
  Transmission Date: 20200409
  Serious: No
  Sender: FDA-Public Use
  Company Number: US-JNJFOC-20200220659

PATIENT
  Sex: Female

DRUGS (1)
  1. PEPCID AC [Suspect]
     Active Substance: FAMOTIDINE
     Indication: PRODUCT USED FOR UNKNOWN INDICATION
     Route: 065
     Dates: start: 20200211

REACTIONS (2)
  - Diarrhoea [Unknown]
  - Reaction to excipient [Unknown]

NARRATIVE: CASE EVENT DATE: 20200211
